FAERS Safety Report 15764055 (Version 1)
Quarter: 2018Q4

REPORT INFORMATION
  Report Type: Spontaneous
  Country: US (occurrence: US)
  Receive Date: 20181227
  Receipt Date: 20181227
  Transmission Date: 20190205
  Serious: No
  Sender: FDA-Public Use
  Company Number: US-BIOGEN-2018BI00672718

PATIENT
  Age: 27 Year
  Sex: Female

DRUGS (1)
  1. TYSABRI [Suspect]
     Active Substance: NATALIZUMAB
     Indication: MULTIPLE SCLEROSIS
     Route: 065
     Dates: start: 20180828

REACTIONS (5)
  - Skin mass [Unknown]
  - Nausea [Unknown]
  - Vascular rupture [Unknown]
  - Swelling [Unknown]
  - Rash generalised [Unknown]

NARRATIVE: CASE EVENT DATE: 20180925
